FAERS Safety Report 26147876 (Version 1)
Quarter: 2025Q4

REPORT INFORMATION
  Report Type: Spontaneous
  Country: US (occurrence: US)
  Receive Date: 20251212
  Receipt Date: 20251212
  Transmission Date: 20260117
  Serious: No
  Sender: SANOFI AVENTIS
  Company Number: US-SANOFI-02691511

PATIENT
  Age: 1 Month
  Sex: Male
  Weight: 4.55 kg

DRUGS (2)
  1. BEYFORTUS [Suspect]
     Active Substance: NIRSEVIMAB-ALIP
     Indication: Antiviral prophylaxis
     Dosage: 100 MG, 1X
     Route: 030
     Dates: start: 20251016, end: 20251016
  2. RECOMBIVAX HB [Concomitant]
     Active Substance: HEPATITIS B VIRUS SUBTYPE ADW HBSAG SURFACE PROTEIN ANTIGEN
     Indication: Immunisation
     Dosage: 0.5 ML
     Route: 030
     Dates: start: 20251016

REACTIONS (1)
  - Extra dose administered [Unknown]

NARRATIVE: CASE EVENT DATE: 20251016
